FAERS Safety Report 4647634-7 (Version None)
Quarter: 2005Q2

REPORT INFORMATION
  Report Type: 
  Country: None (occurrence: None)
  Receive Date: 20050426
  Receipt Date: 20050413
  Transmission Date: 20051028
  Serious: Yes (Hospitalization)
  Sender: FDA-Public Use
  Company Number: MK200504-0171-1

PATIENT
  Age: 35 Year
  Sex: Male

DRUGS (1)
  1. BAROSPERSE ENEMA KT 454GM/16OZ BARIUM SULFATE [Suspect]
     Indication: BARIUM ENEMA
     Dosage: ONE TIME, PR
     Route: 054
     Dates: start: 19690901

REACTIONS (15)
  - CHOLESTASIS [None]
  - CONTRAST MEDIA REACTION [None]
  - DEAFNESS [None]
  - ESCHERICHIA INFECTION [None]
  - HEPATIC FIBROSIS [None]
  - HEPATIC NECROSIS [None]
  - HEPATITIS POST TRANSFUSION [None]
  - PELVIC ABSCESS [None]
  - PORTAL VEIN OCCLUSION [None]
  - PROCEDURAL COMPLICATION [None]
  - PURULENCE [None]
  - SEPSIS [None]
  - SPLENOMEGALY [None]
  - SPUTUM CULTURE POSITIVE [None]
  - THERAPY NON-RESPONDER [None]
